FAERS Safety Report 24041347 (Version 1)
Quarter: 2024Q3

REPORT INFORMATION
  Report Type: Spontaneous
  Country: US (occurrence: US)
  Receive Date: 20240702
  Receipt Date: 20240702
  Transmission Date: 20241016
  Serious: No
  Sender: SAREPTA THERAPEUTICS
  Company Number: US-SAREPTA THERAPEUTICS INC.-SRP2023-003644

PATIENT
  Age: 19 Year
  Sex: Male
  Weight: 35.6 kg

DRUGS (6)
  1. EXONDYS 51 [Suspect]
     Active Substance: ETEPLIRSEN
     Indication: Duchenne muscular dystrophy
     Dosage: 1100 MILLIGRAM, WEEKLY
     Route: 042
     Dates: start: 20170711
  2. EXONDYS 51 [Suspect]
     Active Substance: ETEPLIRSEN
     Dosage: 1100 MILLIGRAM, WEEKLY
     Route: 042
     Dates: start: 20230726
  3. EMFLAZA [Concomitant]
     Active Substance: DEFLAZACORT
     Indication: Product used for unknown indication
     Dosage: 36 MILLIGRAM (1 TABLET), DAILY
     Route: 048
     Dates: start: 20200131
  4. VITAMIN C [Concomitant]
     Active Substance: ASCORBIC ACID
     Indication: Product used for unknown indication
     Dosage: 250 MILLIGRAM (1 GUMMY),DAILY
     Route: 048
     Dates: start: 20200131
  5. VITAMIN D3 [Concomitant]
     Active Substance: CHOLECALCIFEROL
     Indication: Product used for unknown indication
     Dosage: 2000 INTERNATIONAL UNIT (1 GUMMY), QD
     Route: 048
     Dates: start: 20200131
  6. TUMS [Concomitant]
     Active Substance: CALCIUM CARBONATE
     Indication: Product used for unknown indication
     Dosage: 1 TABLET, DAILY
     Route: 048
     Dates: start: 20200131

REACTIONS (2)
  - Product dose omission issue [Unknown]
  - No adverse event [Unknown]

NARRATIVE: CASE EVENT DATE: 20230719
